FAERS Safety Report 7162079-6 (Version None)
Quarter: 2010Q4

REPORT INFORMATION
  Report Type: 
  Country: None (occurrence: None)
  Receive Date: 20101215
  Receipt Date: 20101213
  Transmission Date: 20110411
  Serious: Yes (Hospitalization)
  Sender: FDA-Public Use
  Company Number: US-ROCHE-603870

PATIENT
  Sex: Female
  Weight: 53.1 kg

DRUGS (13)
  1. BEVACIZUMAB [Suspect]
     Dosage: 5 MG/KG, Q14D
     Route: 042
  2. PLACEBO [Suspect]
     Dosage: 132 MG, QD
     Route: 048
     Dates: start: 20080925
  3. FLUOROURACIL [Suspect]
     Dosage: 400 MG/M2, Q14D
     Route: 042
  4. LEDERVORIN CALCIUM [Suspect]
     Route: 065
  5. OXALIPLATIN [Suspect]
     Dosage: 85 MG/M2, Q14D
     Route: 042
  6. METFORMIN [Concomitant]
     Dosage: 500 MG, BID
  7. CADUET [Concomitant]
     Dosage: 1 TABLET, QD
  8. AVANDIA [Concomitant]
     Dosage: 4 MG, QD
  9. LISINOPRIL [Concomitant]
     Dosage: 5 MG, QD
  10. PANTOPRAZOLE [Concomitant]
     Dosage: 40 MG, QD
  11. PROCHLORPERAZINE [Concomitant]
     Dosage: 10 MG, PRN
     Route: 048
  12. MAGIC MOUTHWASH (DIPHENHYDRAMINE/MAALOX/NYSTATIN) [Concomitant]
     Dosage: 10 ML, PRN
     Route: 048
  13. CIPROFLOXACIN [Concomitant]
     Dosage: 1 UNK, UNK

REACTIONS (1)
  - HYPOKALAEMIA [None]
